FAERS Safety Report 7403877-0 (Version None)
Quarter: 2011Q1

REPORT INFORMATION
  Report Type: 
  Country: None (occurrence: None)
  Receive Date: 20110331
  Receipt Date: 20110318
  Transmission Date: 20110831
  Serious: Yes (Hospitalization)
  Sender: FDA-Public Use
  Company Number: 2011001269

PATIENT
  Age: 87 Year
  Sex: Male

DRUGS (13)
  1. FLOMAX [Concomitant]
  2. PREDNISONE [Concomitant]
  3. RESTORIL [Concomitant]
  4. NIFEDIPINE [Concomitant]
  5. TARCEVA [Suspect]
     Indication: LUNG NEOPLASM MALIGNANT
     Dosage: (150 MG, QD) ,ORAL
     Route: 048
     Dates: start: 20110221
  6. AMITRIPTYLINE HCL [Concomitant]
  7. FLOVENT [Concomitant]
  8. OXYCONTIN [Concomitant]
  9. STOOL SOFTENER (DOCUSATE SODIUM) [Concomitant]
  10. TUSSINEX [Concomitant]
  11. PROSCAR [Concomitant]
  12. PRAVASTATIN [Concomitant]
  13. FISH OIL (FISH OIL) [Concomitant]

REACTIONS (4)
  - ATRIAL FIBRILLATION [None]
  - RASH [None]
  - DYSPNOEA [None]
  - PYREXIA [None]
